FAERS Safety Report 9305498 (Version 1)
Quarter: 2013Q2

REPORT INFORMATION
  Report Type: Spontaneous
  Country: US (occurrence: US)
  Receive Date: 20130523
  Receipt Date: 20130523
  Transmission Date: 20140414
  Serious: Yes (Other)
  Sender: FDA-Public Use
  Company Number: US-AMGEN-USASP2013035106

PATIENT
  Age: 69 Year
  Sex: Female

DRUGS (1)
  1. PROLIA [Suspect]
     Indication: OSTEOPOROSIS POSTMENOPAUSAL
     Dosage: UNK

REACTIONS (6)
  - Vasculitis [Unknown]
  - Discomfort [Unknown]
  - Paraesthesia [Unknown]
  - Adverse drug reaction [Unknown]
  - Local swelling [Unknown]
  - Rash [Not Recovered/Not Resolved]
